FAERS Safety Report 8238734-3 (Version None)
Quarter: 2012Q1

REPORT INFORMATION
  Report Type: 
  Country: None (occurrence: None)
  Receive Date: 20120327
  Receipt Date: 20120319
  Transmission Date: 20120608
  Serious: No
  Sender: FDA-Public Use
  Company Number: US-BAYER-2012-027249

PATIENT
  Age: 25 Year
  Sex: Female

DRUGS (2)
  1. BEYAZ [Suspect]
     Indication: ENDOMETRIOSIS
  2. BEYAZ [Suspect]
     Indication: CONTRACEPTION
     Dosage: UNK
     Dates: start: 20110801

REACTIONS (1)
  - NO ADVERSE EVENT [None]
